FAERS Safety Report 16881775 (Version 5)
Quarter: 2019Q4

REPORT INFORMATION
  Report Type: Spontaneous
  Country: DE (occurrence: DE)
  Receive Date: 20191003
  Receipt Date: 20191213
  Transmission Date: 20200122
  Serious: Yes (Hospitalization, Other)
  Sender: FDA-Public Use
  Company Number: DE-ALEXION PHARMACEUTICALS INC.-A201915114

PATIENT
  Age: 2 Year
  Sex: Female
  Weight: 7.1 kg

DRUGS (6)
  1. VIGANTOLETTEN [Concomitant]
     Active Substance: CHOLECALCIFEROL
     Indication: PRODUCT USED FOR UNKNOWN INDICATION
     Dosage: 1000 IU, QD
     Route: 048
  2. STRENSIQ [Suspect]
     Active Substance: ASFOTASE ALFA
     Indication: HYPOPHOSPHATASIA
     Dosage: 2 MG/KG, TIW
     Route: 065
  3. NUROFEN                            /00109201/ [Concomitant]
     Active Substance: IBUPROFEN
     Indication: PAIN
     Dosage: 70 MG, TID PRN
     Route: 048
  4. STRENSIQ [Suspect]
     Active Substance: ASFOTASE ALFA
     Dosage: 14 MG, TIW MONDAY, WEDNESDAY, FRIDAY
     Route: 058
  5. VITAMIN D                          /00107901/ [Concomitant]
     Active Substance: ERGOCALCIFEROL
     Indication: PRODUCT USED FOR UNKNOWN INDICATION
     Route: 065
  6. ZYMAFLUOR [Concomitant]
     Active Substance: SODIUM FLUORIDE
     Indication: PRODUCT USED FOR UNKNOWN INDICATION
     Dosage: 500 IU, TIW
     Route: 065

REACTIONS (13)
  - Muscular weakness [Unknown]
  - Scaphocephaly [Not Recovered/Not Resolved]
  - Weight gain poor [Unknown]
  - Pathological fracture [Not Recovered/Not Resolved]
  - Papilloedema [Not Recovered/Not Resolved]
  - Knee deformity [Unknown]
  - Drug ineffective [Not Recovered/Not Resolved]
  - Vitamin D increased [Unknown]
  - Motor developmental delay [Unknown]
  - Blood alkaline phosphatase increased [Unknown]
  - Blood calcium increased [Unknown]
  - Intracranial pressure increased [Not Recovered/Not Resolved]
  - Imaging procedure abnormal [Not Recovered/Not Resolved]
